FAERS Safety Report 14751159 (Version 1)
Quarter: 2018Q2

REPORT INFORMATION
  Report Type: Spontaneous
  Country: GB (occurrence: GB)
  Receive Date: 20180412
  Receipt Date: 20180412
  Transmission Date: 20180711
  Serious: Yes (Other)
  Sender: FDA-Public Use
  Company Number: GB-MYLANLABS-2018M1019995

PATIENT
  Sex: Female

DRUGS (1)
  1. EFUDIX [Suspect]
     Active Substance: FLUOROURACIL
     Indication: SUNBURN
     Dosage: UNK
     Route: 061

REACTIONS (3)
  - Vulvovaginal injury [Unknown]
  - Vulvar erosion [Unknown]
  - Vulval ulceration [Unknown]
